FAERS Safety Report 13774939 (Version 1)
Quarter: 2017Q3

REPORT INFORMATION
  Report Type: Spontaneous
  Country: US (occurrence: US)
  Receive Date: 20170721
  Receipt Date: 20170721
  Transmission Date: 20171127
  Serious: Yes (Other)
  Sender: FDA-Public Use
  Company Number: US-JNJFOC-20170715289

PATIENT
  Sex: Male

DRUGS (2)
  1. HALDOL DECANOATE [Suspect]
     Active Substance: HALOPERIDOL DECANOATE
     Indication: SCHIZOPHRENIA
     Dosage: STARTED 5 MONTHS AGO IN 2017(FROM THE TIME OF THIS REPORT)
     Route: 030
     Dates: start: 2017
  2. HALDOL [Suspect]
     Active Substance: HALOPERIDOL
     Indication: PRODUCT USED FOR UNKNOWN INDICATION
     Route: 048

REACTIONS (5)
  - Rectal haemorrhage [Unknown]
  - Penile swelling [Unknown]
  - Dysuria [Unknown]
  - Testicular swelling [Unknown]
  - Foot fracture [Unknown]

NARRATIVE: CASE EVENT DATE: 2017
